FAERS Safety Report 7060265-7 (Version None)
Quarter: 2010Q4

REPORT INFORMATION
  Report Type: 
  Country: None (occurrence: None)
  Receive Date: 20101025
  Receipt Date: 20101025
  Transmission Date: 20110411
  Serious: Yes (Life-Threatening, Hospitalization)
  Sender: FDA-Public Use
  Company Number: ZA-JNJFOC-20100806521

PATIENT
  Sex: Female
  Weight: 45 kg

DRUGS (11)
  1. DURAGESIC-100 [Suspect]
     Indication: OSTEOARTHRITIS
     Route: 062
  2. TRAMADOL HCL [Suspect]
     Indication: OSTEOARTHRITIS
     Dosage: 2 TABLETS 4 TIME A DAY
     Route: 048
  3. STALEVO 100 [Suspect]
     Indication: PARKINSON'S DISEASE
     Route: 048
  4. CIPRALEX [Suspect]
     Indication: ANXIETY
     Route: 048
  5. CIPRALEX [Suspect]
     Indication: DEPRESSION
     Route: 048
  6. AZILECT [Suspect]
     Indication: PARKINSON'S DISEASE
     Route: 048
  7. CELEBREX [Suspect]
     Indication: OSTEOARTHRITIS
     Route: 048
  8. IMOVANE [Concomitant]
     Indication: INSOMNIA
     Route: 048
  9. SINEMET CR [Concomitant]
     Indication: PARKINSON'S DISEASE
     Dosage: 50/200 MG
     Route: 048
  10. CALCIFEROL [Concomitant]
     Indication: OSTEOPOROSIS
     Dosage: 50000 IU MG MON/WED/FRI DAYS
     Route: 048
  11. OCUVITE LUTEIN [Concomitant]
     Indication: MACULAR DEGENERATION
     Route: 065

REACTIONS (10)
  - DRUG DEPENDENCE [None]
  - DYSKINESIA [None]
  - HYPERHIDROSIS [None]
  - HYPERKALAEMIA [None]
  - HYPERTENSION [None]
  - PSYCHOTIC DISORDER [None]
  - PYREXIA [None]
  - RENAL FAILURE [None]
  - RHABDOMYOLYSIS [None]
  - TACHYCARDIA [None]
